FAERS Safety Report 25067647 (Version 1)
Quarter: 2025Q1

REPORT INFORMATION
  Report Type: Report from Study
  Country: US (occurrence: US)
  Receive Date: 20250312
  Receipt Date: 20250312
  Transmission Date: 20250408
  Serious: Yes (Other)
  Sender: BAYER HEALTHCARE LLC
  Company Number: US-BAYER-2025A029770

PATIENT

DRUGS (1)
  1. ALKA-SELTZER PLUS SEVERE COLD POWERFAST FIZZ DAY AND NIGHT [Suspect]
     Active Substance: ASPIRIN\DEXTROMETHORPHAN HYDROBROMIDE\DOXYLAMINE SUCCINATE\PHENYLEPHRINE BITARTRATE
     Route: 048

REACTIONS (2)
  - Drug dependence [Unknown]
  - Extra dose administered [Unknown]
